FAERS Safety Report 8841715 (Version 1)
Quarter: 2012Q4

REPORT INFORMATION
  Report Type: Spontaneous
  Country: US (occurrence: None)
  Receive Date: 20121011
  Receipt Date: 20121011
  Transmission Date: 20130627
  Serious: Yes (Other)
  Sender: FDA-Public Use
  Company Number: ACO_30058_2012

PATIENT
  Age: 57 Year
  Sex: Female
  Weight: 68 kg

DRUGS (4)
  1. AMPYRA [Suspect]
     Indication: GAIT DISTURBANCE
     Route: 048
     Dates: start: 20120326, end: 201208
  2. GABAPENTIN (GABAPENTIN) [Concomitant]
  3. BACLOFEN (BACLOFEN) [Concomitant]
  4. THYROXINE (LEVOTHYROXINE SODIUM) [Concomitant]

REACTIONS (13)
  - Bladder pain [None]
  - Skin burning sensation [None]
  - Pruritus [None]
  - Dry skin [None]
  - Bladder disorder [None]
  - Cystitis [None]
  - Headache [None]
  - Dizziness [None]
  - Asthenia [None]
  - Constipation [None]
  - Balance disorder [None]
  - Drug ineffective [None]
  - Haemorrhage urinary tract [None]
